FAERS Safety Report 9662004 (Version 2)
Quarter: 2013Q4

REPORT INFORMATION
  Report Type: Spontaneous
  Country: US (occurrence: US)
  Receive Date: 20131031
  Receipt Date: 20131031
  Transmission Date: 20140711
  Serious: No
  Sender: FDA-Public Use
  Company Number: US-PURDUE-USA-2010-0051095

PATIENT
  Age: 39 Year
  Sex: Female

DRUGS (2)
  1. OXYCONTIN (NDA 22-272) [Suspect]
     Indication: BACK PAIN
     Dosage: 160 MG, Q12H
     Dates: start: 20101004
  2. OXYCODONE HYDROCHLORIDE (SIMILAR TO NDA 22-272) [Concomitant]
     Indication: BREAKTHROUGH PAIN

REACTIONS (4)
  - Medication residue present [Unknown]
  - Breakthrough pain [Unknown]
  - Drug ineffective [Unknown]
  - Constipation [Unknown]
